FAERS Safety Report 25258270 (Version 3)
Quarter: 2025Q3

REPORT INFORMATION
  Report Type: Spontaneous
  Country: JP (occurrence: JP)
  Receive Date: 20250501
  Receipt Date: 20250704
  Transmission Date: 20251021
  Serious: Yes (Disabling)
  Sender: ASTELLAS
  Company Number: JP-ASTELLAS-2025-AER-022025

PATIENT
  Age: 84 Year
  Sex: Male

DRUGS (1)
  1. XTANDI [Suspect]
     Active Substance: ENZALUTAMIDE
     Indication: Product used for unknown indication
     Route: 048
     Dates: start: 20250217, end: 20250317

REACTIONS (2)
  - Necrosis [Unknown]
  - Underdose [Unknown]

NARRATIVE: CASE EVENT DATE: 20250217
